FAERS Safety Report 23452867 (Version 1)
Quarter: 2024Q1

REPORT INFORMATION
  Report Type: Spontaneous
  Country: US (occurrence: US)
  Receive Date: 20240129
  Receipt Date: 20240129
  Transmission Date: 20240409
  Serious: No
  Sender: FDA-Public Use
  Company Number: US-FreseniusKabi-FK202401441

PATIENT
  Age: 41 Year
  Sex: Male
  Weight: 70.3 kg

DRUGS (6)
  1. HEPARIN SODIUM [Suspect]
     Active Substance: HEPARIN SODIUM
     Indication: Anticoagulant therapy
     Dosage: 400 UNITS/KG (28,000 UNITS) GIVEN PRE CPB AT 11:36
     Dates: start: 20240109
  2. HEPARIN SODIUM [Suspect]
     Active Substance: HEPARIN SODIUM
     Dosage: ADDITIONAL 10000 UNITS IN CPB PRIME
     Dates: start: 20240109
  3. HEPARIN SODIUM [Suspect]
     Active Substance: HEPARIN SODIUM
     Dosage: ADDITIONAL 10000 UNITS BOLUSED AT 1211
     Dates: start: 20240109
  4. HEPARIN SODIUM [Suspect]
     Active Substance: HEPARIN SODIUM
     Dosage: 5000 UNITS ADDITIONAL GIVEN
     Dates: start: 20240109
  5. HEPARIN SODIUM [Suspect]
     Active Substance: HEPARIN SODIUM
     Dosage: ADDITIONAL 5000 UNITS BOLUSED AT 1254
     Dates: start: 20240109
  6. PROTAMINE [Concomitant]
     Active Substance: PROTAMINE
     Indication: Product used for unknown indication
     Dosage: BEDSIDE

REACTIONS (1)
  - Drug ineffective [Unknown]

NARRATIVE: CASE EVENT DATE: 20240109
